FAERS Safety Report 20801869 (Version 1)
Quarter: 2022Q2

REPORT INFORMATION
  Report Type: Spontaneous
  Country: US (occurrence: None)
  Receive Date: 20220509
  Receipt Date: 20220509
  Transmission Date: 20220720
  Serious: Yes (Hospitalization, Other)
  Sender: FDA-Public Use
  Company Number: US-MICRO LABS LIMITED-ML2022-01966

PATIENT
  Age: 62 Year
  Sex: Male

DRUGS (7)
  1. APIXABAN [Suspect]
     Active Substance: APIXABAN
     Dosage: APIXABAN 5 MG TWICE DAILY
  2. RIVAROXABAN [Suspect]
     Active Substance: RIVAROXABAN
     Dosage: RIVAROXABAN 10 MG BY MOUTH DAILY
     Route: 048
  3. METRONIDAZOLE [Concomitant]
     Active Substance: METRONIDAZOLE
     Indication: Osteomyelitis
     Route: 048
  4. CEFAZOLIN [Concomitant]
     Active Substance: CEFAZOLIN
     Dosage: IV ANTIBIOTICS WITH CEFAZOLIN 2 G IV THREE TIMES DAILY
     Route: 042
  5. ENOXAPARIN [Concomitant]
     Active Substance: ENOXAPARIN
     Route: 058
  6. INSULIN NOS [Concomitant]
     Active Substance: INSULIN NOS
     Route: 058
  7. WARFARIN [Concomitant]
     Active Substance: WARFARIN

REACTIONS (2)
  - Cross sensitivity reaction [Recovering/Resolving]
  - Rash maculo-papular [Recovering/Resolving]
